FAERS Safety Report 26053524 (Version 1)
Quarter: 2025Q4

REPORT INFORMATION
  Report Type: Spontaneous
  Country: EU (occurrence: EU)
  Receive Date: 20251117
  Receipt Date: 20251117
  Transmission Date: 20260118
  Serious: Yes (Hospitalization, Other)
  Sender: AIPING PHARMACEUTICAL
  Company Number: EU-AIPING-2025AILIT00190

PATIENT
  Age: 11 Year
  Sex: Male
  Weight: 35 kg

DRUGS (3)
  1. LEVETIRACETAM [Suspect]
     Active Substance: LEVETIRACETAM
     Indication: Epilepsy
     Dosage: OVER 30 MINUTES ON DAY 3RD OF HOSPITALIZATION AT 6 PM
     Route: 042
  2. LEVETIRACETAM [Suspect]
     Active Substance: LEVETIRACETAM
     Dosage: OVER 30 MINUTES ON DAY 4TH OF HOSPITALIZATION AT 6 AM
     Route: 042
  3. SODIUM CHLORIDE [Suspect]
     Active Substance: SODIUM CHLORIDE
     Indication: Medication dilution
     Route: 065

REACTIONS (2)
  - Metabolic acidosis [Recovered/Resolved]
  - Epilepsy [Unknown]
